FAERS Safety Report 8143988-8 (Version None)
Quarter: 2012Q1

REPORT INFORMATION
  Report Type: 
  Country: None (occurrence: None)
  Receive Date: 20120217
  Receipt Date: 20120217
  Transmission Date: 20120608
  Serious: Yes (Other)
  Sender: FDA-Public Use
  Company Number: None

PATIENT
  Sex: Female
  Weight: 56.699 kg

DRUGS (1)
  1. IMPLANON [Suspect]
     Indication: CONTRACEPTION
     Dosage: ESTONOGESTREL IMPLANT
     Route: 059
     Dates: start: 20100316, end: 20120117

REACTIONS (1)
  - CYSTITIS INTERSTITIAL [None]
